APPROVED DRUG PRODUCT: VECURONIUM BROMIDE
Active Ingredient: VECURONIUM BROMIDE
Strength: 20MG/VIAL
Dosage Form/Route: INJECTABLE;INJECTION
Application: A075218 | Product #002
Applicant: HIKMA PHARMACEUTICALS USA INC
Approved: Aug 23, 1999 | RLD: No | RS: No | Type: DISCN